FAERS Safety Report 6552834-5 (Version None)
Quarter: 2010Q1

REPORT INFORMATION
  Report Type: 
  Country: None (occurrence: None)
  Receive Date: 20100121
  Receipt Date: 20100111
  Transmission Date: 20100710
  Serious: Yes (Life-Threatening, Hospitalization, Other)
  Sender: FDA-Public Use
  Company Number: 472580

PATIENT
  Age: 59 Year
  Sex: Female
  Weight: 42.1845 kg

DRUGS (2)
  1. METHOTREXATE [Suspect]
     Indication: DRUG USE FOR UNKNOWN INDICATION
  2. RITUXAN [Suspect]
     Indication: DRUG USE FOR UNKNOWN INDICATION

REACTIONS (5)
  - ANAEMIA [None]
  - BREAST CANCER [None]
  - BREAST CANCER IN SITU [None]
  - FATIGUE [None]
  - WEIGHT DECREASED [None]
